FAERS Safety Report 25226894 (Version 2)
Quarter: 2025Q2

REPORT INFORMATION
  Report Type: Spontaneous
  Country: DE (occurrence: DE)
  Receive Date: 20250422
  Receipt Date: 20250425
  Transmission Date: 20250716
  Serious: Yes (Life-Threatening, Hospitalization, Other)
  Sender: MYLAN
  Company Number: DE-SANDOZ-SDZ2025DE022377

PATIENT
  Sex: Male
  Weight: 74.7 kg

DRUGS (7)
  1. ATORVASTATIN [Suspect]
     Active Substance: ATORVASTATIN
     Indication: Hypercholesterolaemia
     Dosage: 80 MILLIGRAM, QD
     Dates: start: 202308, end: 20241216
  2. EZETIMIBE [Suspect]
     Active Substance: EZETIMIBE
     Indication: Hypercholesterolaemia
     Dosage: 10 MILLIGRAM, QD
     Dates: start: 202308, end: 20250104
  3. INCLISIRAN [Suspect]
     Active Substance: INCLISIRAN
     Indication: Hypercholesterolaemia
  4. INCLISIRAN [Suspect]
     Active Substance: INCLISIRAN
  5. PANCRELIPASE [Concomitant]
     Active Substance: PANCRELIPASE
     Indication: Pancreatic failure
     Dosage: 25000 INTERNATIONAL UNIT, TID (75000 INTERNATIONAL UNIT, QD, 25000 IU, TID)
     Dates: start: 20250215
  6. CAPECITABINE [Concomitant]
     Active Substance: CAPECITABINE
     Indication: Pancreatic carcinoma
     Dosage: 1000 MILLIGRAM, BID (2000 MILLIGRAM, QD, 1000 MG, BID)
     Dates: start: 20250227
  7. LINEZOLID [Concomitant]
     Active Substance: LINEZOLID
     Indication: Drainage
     Dates: start: 20250121, end: 20250127

REACTIONS (5)
  - Pancreatic carcinoma [Recovering/Resolving]
  - Cholestasis [Recovering/Resolving]
  - Dehiscence [Recovered/Resolved]
  - Abscess [Recovered/Resolved]
  - Hepatic enzyme increased [Not Recovered/Not Resolved]

NARRATIVE: CASE EVENT DATE: 20241212
